FAERS Safety Report 16107832 (Version 2)
Quarter: 2019Q2

REPORT INFORMATION
  Report Type: Report from Study
  Country: JP (occurrence: JP)
  Receive Date: 20190322
  Receipt Date: 20190423
  Transmission Date: 20190711
  Serious: Yes (Hospitalization)
  Sender: FDA-Public Use
  Company Number: JP-PFIZER INC-2019125712

PATIENT
  Age: 56 Year
  Sex: Female
  Weight: 33 kg

DRUGS (6)
  1. CERCINE [Concomitant]
     Active Substance: DIAZEPAM
     Dosage: 1 DF, 3X/DAY (1 DOSAGE FORMS,8 HR)
     Route: 048
  2. EXCELASE [Concomitant]
     Active Substance: PANCRELIPASE
     Dosage: 2 DF, 3X/DAY (2 DOSAGE FORMS,8 HR)
     Route: 048
  3. MEILAX [Concomitant]
     Active Substance: ETHYL LOFLAZEPATE
     Dosage: 1 DF, 1X/DAY
     Route: 048
  4. RAPALIMUS [Suspect]
     Active Substance: SIROLIMUS
     Indication: LYMPHANGIOLEIOMYOMATOSIS
     Dosage: 1 MG, 1X/DAY
     Route: 048
     Dates: start: 20141222
  5. ZYPREXA [Concomitant]
     Active Substance: OLANZAPINE
     Dosage: 1 DF, 1X/DAY
     Route: 048
  6. HALCION [Concomitant]
     Active Substance: TRIAZOLAM
     Dosage: 1 DF, 1X/DAY
     Route: 048

REACTIONS (1)
  - Noninfective encephalitis [Recovered/Resolved]
